FAERS Safety Report 21335735 (Version 3)
Quarter: 2023Q2

REPORT INFORMATION
  Report Type: Report from Study
  Country: US (occurrence: US)
  Receive Date: 20220915
  Receipt Date: 20230403
  Transmission Date: 20230721
  Serious: No
  Sender: FDA-Public Use
  Company Number: US-ALK-ABELLO A/S-2022AA002923

PATIENT

DRUGS (3)
  1. GRAZAX [Suspect]
     Active Substance: PHLEUM PRATENSE POLLEN
     Indication: Product used for unknown indication
     Dosage: UNK
     Dates: start: 202203
  2. PEPCID AC [Concomitant]
     Active Substance: FAMOTIDINE
  3. ZYRTEC [Concomitant]
     Active Substance: CETIRIZINE HYDROCHLORIDE

REACTIONS (5)
  - Sinusitis [Unknown]
  - Ear infection [Unknown]
  - Illness [Unknown]
  - Pruritus [Unknown]
  - Nasal congestion [Unknown]
